FAERS Safety Report 16693245 (Version 2)
Quarter: 2022Q2

REPORT INFORMATION
  Report Type: Spontaneous
  Country: US (occurrence: CA)
  Receive Date: 20190812
  Receipt Date: 20220627
  Transmission Date: 20220721
  Serious: Yes (Other)
  Sender: FDA-Public Use
  Company Number: CA-SA-2019SA208535

PATIENT
  Age: 66 Year
  Sex: Female

DRUGS (18)
  1. ARAVA [Suspect]
     Active Substance: LEFLUNOMIDE
     Dosage: 1 DF, QD
     Route: 065
     Dates: start: 20140201, end: 20141101
  2. ATORVASTATIN CALCIUM [Suspect]
     Active Substance: ATORVASTATIN CALCIUM
     Indication: Blood cholesterol
     Dosage: 1 DF
     Route: 048
     Dates: start: 20141124, end: 2014
  3. METHOTREXATE [Suspect]
     Active Substance: METHOTREXATE
     Indication: Product used for unknown indication
     Dosage: 20 MG
     Route: 048
     Dates: start: 20131101, end: 20140201
  4. METHOTREXATE [Suspect]
     Active Substance: METHOTREXATE
  5. ENBREL [Suspect]
     Active Substance: ETANERCEPT
     Indication: Rheumatoid arthritis
     Dosage: 50 MG, QW
     Route: 065
     Dates: start: 20140724
  6. ENBREL [Suspect]
     Active Substance: ETANERCEPT
  7. HUMIRA [Suspect]
     Active Substance: ADALIMUMAB
     Indication: Rheumatoid arthritis
     Dosage: UNK
     Route: 058
     Dates: end: 20180720
  8. ORENCIA [Suspect]
     Active Substance: ABATACEPT
     Indication: Product used for unknown indication
     Dosage: UNK
  9. ORENCIA [Suspect]
     Active Substance: ABATACEPT
  10. ACETAMINOPHEN [Concomitant]
     Active Substance: ACETAMINOPHEN
     Dosage: UNK
  11. FUROSEMIDE [Concomitant]
     Active Substance: FUROSEMIDE
     Dosage: UNK
  12. ASPIRIN [Concomitant]
     Active Substance: ASPIRIN
     Dosage: UNK
  13. CALCIUM CARBONATE\CHOLECALCIFEROL [Concomitant]
     Active Substance: CALCIUM CARBONATE\CHOLECALCIFEROL
     Dosage: UNK
  14. LISINOPRIL [Concomitant]
     Active Substance: LISINOPRIL
     Dosage: UNK
  15. METFORMIN [Concomitant]
     Active Substance: METFORMIN HYDROCHLORIDE
     Dosage: UNK
  16. SAXAGLIPTIN HYDROCHLORIDE [Concomitant]
     Active Substance: SAXAGLIPTIN HYDROCHLORIDE
     Dosage: UNK
  17. TYLENOL [Concomitant]
     Active Substance: ACETAMINOPHEN
     Dosage: UNK
  18. ZYLOPRIM [Concomitant]
     Active Substance: ALLOPURINOL
     Dosage: UNK

REACTIONS (10)
  - Synovitis [Not Recovered/Not Resolved]
  - Peripheral swelling [Unknown]
  - Blood cholesterol increased [Unknown]
  - Fatigue [Unknown]
  - Injection site pain [Unknown]
  - Drug intolerance [Unknown]
  - Nausea [Not Recovered/Not Resolved]
  - Drug-induced liver injury [Unknown]
  - Drug ineffective [Unknown]
  - Drug ineffective [Unknown]

NARRATIVE: CASE EVENT DATE: 20140101
